FAERS Safety Report 5197743-1 (Version None)
Quarter: 2006Q4

REPORT INFORMATION
  Report Type: 
  Country: None (occurrence: None)
  Receive Date: 20061227
  Receipt Date: 20061213
  Transmission Date: 20070319
  Serious: Yes (Other)
  Sender: FDA-Public Use
  Company Number: 2006142120

PATIENT
  Age: 36 Year
  Sex: Female
  Weight: 40 kg

DRUGS (5)
  1. LYRICA [Suspect]
     Indication: FACIAL NEURALGIA
     Dosage: 150 MG (1 D)
     Dates: start: 20060814, end: 20061108
  2. LANTUS [Concomitant]
  3. HUMALOG [Concomitant]
  4. LIBRAX [Concomitant]
  5. DUSPATALIN ^DUPHAR^ (MEBEVERINE HYDROCHLORIDE) [Concomitant]

REACTIONS (6)
  - DRUG INEFFECTIVE [None]
  - IMMUNE SYSTEM DISORDER [None]
  - LEUKOPENIA [None]
  - ORAL CANDIDIASIS [None]
  - THROMBOCYTOPENIA [None]
  - URINARY TRACT INFECTION [None]
